FAERS Safety Report 17192927 (Version 3)
Quarter: 2020Q1

REPORT INFORMATION
  Report Type: Spontaneous
  Country: US (occurrence: US)
  Receive Date: 20191223
  Receipt Date: 20200221
  Transmission Date: 20200409
  Serious: No
  Sender: FDA-Public Use
  Company Number: US-SA-2019SA348015

PATIENT
  Age: 39 Year
  Sex: Female

DRUGS (1)
  1. DUPIXENT [Suspect]
     Active Substance: DUPILUMAB
     Indication: NASAL POLYPS
     Dosage: 300 MG, QOW
     Route: 058
     Dates: start: 20191009

REACTIONS (5)
  - Injection site erythema [Recovered/Resolved]
  - Injection site warmth [Recovered/Resolved]
  - Injection site dryness [Unknown]
  - Injection site swelling [Recovered/Resolved]
  - Injection site pruritus [Unknown]

NARRATIVE: CASE EVENT DATE: 2019
